FAERS Safety Report 11701571 (Version 1)
Quarter: 2015Q4

REPORT INFORMATION
  Report Type: Spontaneous
  Country: US (occurrence: US)
  Receive Date: 20151105
  Receipt Date: 20151105
  Transmission Date: 20160304
  Serious: No
  Sender: FDA-Public Use
  Company Number: US-MALLINCKRODT-T201404469

PATIENT
  Age: 51 Year
  Sex: Male
  Weight: 80.73 kg

DRUGS (4)
  1. FENTANYL TRANSDERMAL SYSTEM [Suspect]
     Active Substance: FENTANYL
     Dosage: TWO 75 MCG/HR FTS DURING THE NIGHT
     Route: 062
     Dates: start: 20141212, end: 20141212
  2. FENTANYL TRANSDERMAL SYSTEM [Suspect]
     Active Substance: FENTANYL
     Indication: PAIN IN EXTREMITY
     Dosage: 75 UG/HR, Q 72 HRS
     Route: 062
     Dates: start: 20141211
  3. HYDROCODONE BITARTRATE AND ACETAMINOPHEN [Concomitant]
     Active Substance: ACETAMINOPHEN\HYDROCODONE BITARTRATE
     Indication: BREAKTHROUGH PAIN
     Dosage: 10/325 MG, PRN
  4. FENTANYL. [Concomitant]
     Active Substance: FENTANYL
     Indication: PAIN IN EXTREMITY
     Dosage: 50 UG/HR, UNK
     Route: 062
     Dates: end: 201412

REACTIONS (2)
  - Drug ineffective [Recovering/Resolving]
  - Intentional product misuse [Recovered/Resolved]

NARRATIVE: CASE EVENT DATE: 20141212
